FAERS Safety Report 12624880 (Version 2)
Quarter: 2016Q3

REPORT INFORMATION
  Report Type: Spontaneous
  Country: US (occurrence: US)
  Receive Date: 20160805
  Receipt Date: 20160825
  Transmission Date: 20161109
  Serious: No
  Sender: FDA-Public Use
  Company Number: US-PFIZER INC-2016361106

PATIENT

DRUGS (3)
  1. DACOGEN [Concomitant]
     Active Substance: DECITABINE
     Dosage: UNK
  2. CYTADINE [Suspect]
     Active Substance: CYPROHEPTADINE HYDROCHLORIDE
     Indication: MYELODYSPLASTIC SYNDROME
     Dosage: UNK
  3. CYTARABINE. [Suspect]
     Active Substance: CYTARABINE
     Indication: MYELODYSPLASTIC SYNDROME
     Dosage: UNK

REACTIONS (2)
  - Product use issue [Unknown]
  - Dyspnoea [Unknown]
